FAERS Safety Report 14170381 (Version 1)
Quarter: 2017Q4

REPORT INFORMATION
  Report Type: Report from Study
  Country: SK (occurrence: SK)
  Receive Date: 20171108
  Receipt Date: 20171108
  Transmission Date: 20180321
  Serious: Yes (Hospitalization)
  Sender: FDA-Public Use
  Company Number: PHHO2016SK004948

PATIENT
  Age: 45 Year
  Sex: Male
  Weight: 88 kg

DRUGS (16)
  1. DEPAKINE CHRONO [Concomitant]
     Active Substance: VALPROATE SODIUM
     Indication: EPILEPSY
     Dosage: 500 MG, QD
     Route: 048
     Dates: start: 19870601
  2. HUMULIN M3 [Concomitant]
     Active Substance: INSULIN HUMAN
     Indication: TYPE 2 DIABETES MELLITUS
     Dosage: 26 IU, QD
     Route: 058
     Dates: start: 20120615
  3. HUMULIN M3 [Concomitant]
     Active Substance: INSULIN HUMAN
     Dosage: 28 IU, QD
     Route: 058
  4. BISOPROLOL [Concomitant]
     Active Substance: BISOPROLOL
     Indication: HYPERTENSION
     Dosage: 5 MG, QD
     Route: 048
     Dates: start: 20120515
  5. ACZ885 [Suspect]
     Active Substance: CANAKINUMAB
     Indication: CARDIOVASCULAR EVENT PROPHYLAXIS
     Dosage: 150 MG, QUARTERLY
     Route: 058
     Dates: start: 20131030, end: 20160115
  6. HUMULIN M3 [Concomitant]
     Active Substance: INSULIN HUMAN
     Dosage: 6 IU, TID
     Route: 058
  7. HUMULIN M3 [Concomitant]
     Active Substance: INSULIN HUMAN
     Dosage: 8 IU, QD
     Route: 058
  8. ATORVASTATIN [Concomitant]
     Active Substance: ATORVASTATIN
     Dosage: 40 MG, QD
     Route: 048
  9. FURON [Concomitant]
     Active Substance: FUROSEMIDE
     Indication: MYOCARDIAL ISCHAEMIA
     Dosage: 60 MG, QD
     Route: 048
     Dates: start: 20130521
  10. CLOPIDOGRELUM [Concomitant]
     Indication: MYOCARDIAL ISCHAEMIA
     Dosage: 75 MG, QD
     Route: 048
     Dates: start: 20100315
  11. RIVOTRIL [Concomitant]
     Active Substance: CLONAZEPAM
     Indication: DEPRESSION
     Dosage: 1 MG, BID
     Route: 048
     Dates: start: 20100315
  12. ATORVASTATIN [Concomitant]
     Active Substance: ATORVASTATIN
     Indication: DYSLIPIDAEMIA
     Dosage: 80 MG, QD
     Route: 048
     Dates: start: 20130315
  13. HUMULIN M3 [Concomitant]
     Active Substance: INSULIN HUMAN
     Dosage: 12 IU, QD
     Route: 058
  14. KVENTIAX [Concomitant]
     Active Substance: QUETIAPINE FUMARATE
     Indication: DEPRESSION
     Dosage: 200 MG, QD
     Route: 048
     Dates: start: 20100315
  15. EUPHYLLIN [Concomitant]
     Active Substance: AMINOPHYLLINE
     Indication: CHRONIC OBSTRUCTIVE PULMONARY DISEASE
     Dosage: 200 MG, PRN
     Route: 048
     Dates: start: 20130806
  16. HUMULIN M3 [Concomitant]
     Active Substance: INSULIN HUMAN
     Dosage: 17 IU, QD
     Route: 058
     Dates: end: 20150816

REACTIONS (4)
  - Pneumonia [Recovered/Resolved]
  - Tracheitis [Recovered/Resolved]
  - Respiratory tract infection [Recovered/Resolved]
  - Chronic obstructive pulmonary disease [Recovered/Resolved]

NARRATIVE: CASE EVENT DATE: 20160330
